FAERS Safety Report 8885450 (Version 1)
Quarter: 2012Q4

REPORT INFORMATION
  Report Type: Report from Study
  Country: CA (occurrence: CA)
  Receive Date: 20121101
  Receipt Date: 20121101
  Transmission Date: 20130627
  Serious: Yes (Other)
  Sender: FDA-Public Use
  Company Number: CA-ROCHE-1148370

PATIENT
  Sex: Female
  Weight: 77.18 kg

DRUGS (15)
  1. RITUXIMAB [Suspect]
     Indication: RHEUMATOID ARTHRITIS
     Route: 042
     Dates: start: 20110113
  2. TECTA [Concomitant]
  3. GABAPENTIN [Concomitant]
  4. HCTZ/TRIAMTERENE [Concomitant]
  5. SLOW-K [Concomitant]
  6. NORVASC [Concomitant]
  7. TEVETEN [Concomitant]
  8. PREDNISONE [Concomitant]
  9. CELEXA [Concomitant]
  10. SENOKOT [Concomitant]
  11. COLACE [Concomitant]
  12. HYDROMORPHONE [Concomitant]
  13. ADVAIR [Concomitant]
  14. ZOVIRAX [Concomitant]
  15. SPIRIVA [Concomitant]

REACTIONS (2)
  - Weight fluctuation [Recovering/Resolving]
  - Nausea [Recovering/Resolving]
